FAERS Safety Report 5287137-2 (Version None)
Quarter: 2007Q1

REPORT INFORMATION
  Report Type: 
  Country: None (occurrence: None)
  Receive Date: 20070116
  Receipt Date: 20060919
  Transmission Date: 20070707
  Serious: No
  Sender: FDA-Public Use
  Company Number: 2006SP003338

PATIENT
  Age: 58 Year
  Sex: Female
  Weight: 86.1834 kg

DRUGS (16)
  1. LUNESTA [Suspect]
     Indication: INSOMNIA
     Dosage: SEE IMAGE
     Route: 048
     Dates: start: 20061018, end: 20061018
  2. LUNESTA [Suspect]
     Indication: INSOMNIA
     Dosage: SEE IMAGE
     Route: 048
     Dates: start: 20060917
  3. GLUCOPHAGE [Concomitant]
  4. PROZAC [Concomitant]
  5. XANAX [Concomitant]
  6. LORTAB [Concomitant]
  7. CLINORIL [Concomitant]
  8. NEURONTIN [Concomitant]
  9. SIMVASTATIN [Concomitant]
  10. HYZAAR [Concomitant]
  11. TENORMIN [Concomitant]
  12. FLONASE [Concomitant]
  13. ALBUTEROL [Concomitant]
  14. ADVAIR DISKUS 100/50 [Concomitant]
  15. CENTRUM SILVER [Concomitant]
  16. OMEGA 3 [Concomitant]

REACTIONS (3)
  - DRUG INEFFECTIVE [None]
  - DYSGEUSIA [None]
  - INSOMNIA [None]
